FAERS Safety Report 6977170-4 (Version None)
Quarter: 2010Q3

REPORT INFORMATION
  Report Type: 
  Country: None (occurrence: None)
  Receive Date: 20100910
  Receipt Date: 20100908
  Transmission Date: 20110219
  Serious: No
  Sender: FDA-Public Use
  Company Number: US-ROXANE LABORATORIES, INC.-2010-RO-01203RO

PATIENT
  Sex: Female

DRUGS (1)
  1. MORPHINE [Suspect]
     Indication: PAIN

REACTIONS (1)
  - DRUG HYPERSENSITIVITY [None]
